FAERS Safety Report 21442303 (Version 1)
Quarter: 2022Q4

REPORT INFORMATION
  Report Type: Spontaneous
  Country: US (occurrence: US)
  Receive Date: 20221011
  Receipt Date: 20221011
  Transmission Date: 20230113
  Serious: No
  Sender: FDA-Public Use
  Company Number: US-GILEAD-2022-0601012

PATIENT
  Age: 8 Decade
  Sex: Female
  Weight: 36 kg

DRUGS (1)
  1. VEKLURY [Suspect]
     Active Substance: REMDESIVIR
     Indication: Product used for unknown indication
     Dosage: WEIGHT-BASED DOSING
     Route: 065

REACTIONS (2)
  - Medication error [Recovered/Resolved]
  - Off label use [Recovered/Resolved]
